FAERS Safety Report 19776901 (Version 1)
Quarter: 2021Q3

REPORT INFORMATION
  Report Type: Spontaneous
  Country: BE (occurrence: BE)
  Receive Date: 20210902
  Receipt Date: 20210902
  Transmission Date: 20211014
  Serious: Yes (Other)
  Sender: FDA-Public Use
  Company Number: BE-SA-2021SA284174

PATIENT
  Age: 77 Year

DRUGS (3)
  1. ALEMTUZUMAB [Suspect]
     Active Substance: ALEMTUZUMAB
  2. CAMPATH [Suspect]
     Active Substance: ALEMTUZUMAB
  3. MABCAMPATH [Suspect]
     Active Substance: ALEMTUZUMAB

REACTIONS (1)
  - Thrombocytopenia [Unknown]
